FAERS Safety Report 8280854-1 (Version None)
Quarter: 2012Q2

REPORT INFORMATION
  Report Type: 
  Country: None (occurrence: None)
  Receive Date: 20120412
  Receipt Date: 20120404
  Transmission Date: 20120825
  Serious: Yes (Other)
  Sender: FDA-Public Use
  Company Number: US-ABBOTT-12P-163-0921701-00

PATIENT
  Sex: Female

DRUGS (2)
  1. HUMIRA [Suspect]
     Indication: PSORIATIC ARTHROPATHY
     Route: 058
     Dates: start: 20120312, end: 20120312
  2. HUMIRA [Suspect]
     Route: 058
     Dates: start: 20120319, end: 20120319

REACTIONS (9)
  - PHARYNGEAL OEDEMA [None]
  - INJECTION SITE ERYTHEMA [None]
  - INJECTION SITE SWELLING [None]
  - SWOLLEN TONGUE [None]
  - INJECTION SITE WARMTH [None]
  - LIP SWELLING [None]
  - SWELLING FACE [None]
  - HYPERSENSITIVITY [None]
  - INJECTION SITE PAPULE [None]
